FAERS Safety Report 20169309 (Version 1)
Quarter: 2021Q4

REPORT INFORMATION
  Report Type: Report from Study
  Country: AU (occurrence: AU)
  Receive Date: 20211210
  Receipt Date: 20211210
  Transmission Date: 20220303
  Serious: Yes (Hospitalization, Other)
  Sender: FDA-Public Use
  Company Number: AU-BAYER-2021-207205

PATIENT

DRUGS (1)
  1. EYLEA [Suspect]
     Active Substance: AFLIBERCEPT
     Indication: Neovascular age-related macular degeneration
     Dosage: RIGHT EYE; TOTAL NUMBER OF DOSES UNK; LAST DOSE UNK. FREQUENCY REPORTED EVERY TWO MONTHS (40MG/ML)
     Route: 031
     Dates: start: 20191101

REACTIONS (4)
  - Blindness transient [Recovered/Resolved]
  - Pelvic fracture [Recovering/Resolving]
  - Rib fracture [Recovering/Resolving]
  - Inappropriate schedule of product administration [Recovering/Resolving]

NARRATIVE: CASE EVENT DATE: 20210701
